FAERS Safety Report 8254601-3 (Version None)
Quarter: 2012Q1

REPORT INFORMATION
  Report Type: 
  Country: None (occurrence: None)
  Receive Date: 20120329
  Receipt Date: 20120315
  Transmission Date: 20120608
  Serious: Yes (Other)
  Sender: FDA-Public Use
  Company Number: JPI-P-020392

PATIENT
  Age: 27 Year
  Sex: Female

DRUGS (2)
  1. XYREM [Suspect]
     Indication: NARCOLEPSY
     Dosage: 4.5;9 GM (2.25 GM, 2 IN 1 D), ORAL
     Route: 048
     Dates: start: 20111005
  2. XYREM [Suspect]
     Indication: NARCOLEPSY
     Dosage: 4.5;9 GM (2.25 GM, 2 IN 1 D), ORAL
     Route: 048
     Dates: start: 20111129

REACTIONS (6)
  - GALLBLADDER OPERATION [None]
  - PALPITATIONS [None]
  - WEIGHT DECREASED [None]
  - PANIC REACTION [None]
  - DYSPNOEA [None]
  - DECREASED APPETITE [None]
